FAERS Safety Report 8859985 (Version 1)
Quarter: 2012Q4

REPORT INFORMATION
  Report Type: 
  Country: SE (occurrence: SE)
  Receive Date: 20121025
  Receipt Date: 20121025
  Transmission Date: 20130627
  Serious: Yes (Other)
  Sender: FDA-Public Use
  Company Number: SE-PFIZER INC-2012263173

PATIENT
  Age: 46 Year
  Sex: Female

DRUGS (1)
  1. CYTOTEC [Suspect]
     Dosage: 0.2 mg, 3 doses
     Route: 048
     Dates: start: 20120929, end: 20121001

REACTIONS (6)
  - Proctalgia [Recovered/Resolved]
  - Chills [Recovered/Resolved]
  - Diarrhoea [Recovered/Resolved]
  - Pyrexia [Recovered/Resolved]
  - Haemoglobin decreased [Recovered/Resolved]
  - Tremor [Recovered/Resolved]
